FAERS Safety Report 4745597-7 (Version None)
Quarter: 2005Q3

REPORT INFORMATION
  Report Type: 
  Country: None (occurrence: None)
  Receive Date: 20050815
  Receipt Date: 20050803
  Transmission Date: 20060218
  Serious: Yes (Other)
  Sender: FDA-Public Use
  Company Number: 2005109585

PATIENT
  Age: 73 Year
  Sex: Male
  Weight: 99.7913 kg

DRUGS (4)
  1. NORVASC [Suspect]
     Indication: BLOOD PRESSURE
     Dosage: 5 MG (5 MG, 1 IN 1 D), ORAL
     Route: 048
  2. LIPITOR [Suspect]
     Indication: BLOOD CHOLESTEROL
     Dosage: (10 MG, 1 IN 1 D), ORAL
     Route: 048
  3. ATENOLOL [Suspect]
     Indication: BLOOD PRESSURE
     Dosage: 100 MG (100 MG, 1 IN 1 D), ORAL
     Route: 048
  4. ASPIRIN [Suspect]

REACTIONS (12)
  - ARTERIAL OCCLUSIVE DISEASE [None]
  - ASTHENOPIA [None]
  - BLOOD PRESSURE INCREASED [None]
  - BLOOD PRESSURE SYSTOLIC INCREASED [None]
  - BODY HEIGHT DECREASED [None]
  - CATARACT [None]
  - CHEST PAIN [None]
  - DISTURBANCE IN SEXUAL AROUSAL [None]
  - DIZZINESS [None]
  - ERECTILE DYSFUNCTION [None]
  - INSOMNIA [None]
  - VISUAL DISTURBANCE [None]
